FAERS Safety Report 19508857 (Version 7)
Quarter: 2022Q2

REPORT INFORMATION
  Report Type: Report from Study
  Country: US (occurrence: US)
  Receive Date: 20210708
  Receipt Date: 20220509
  Transmission Date: 20220721
  Serious: No
  Sender: FDA-Public Use
  Company Number: NVSC2021US145177

PATIENT
  Sex: Male

DRUGS (1)
  1. COSENTYX [Suspect]
     Active Substance: SECUKINUMAB
     Indication: Psoriasis
     Dosage: 300 MG (5TH LOADING DOSE)
     Route: 065

REACTIONS (3)
  - Skin atrophy [Unknown]
  - Impaired healing [Unknown]
  - Injection site pain [Unknown]
